FAERS Safety Report 16481379 (Version 4)
Quarter: 2019Q4

REPORT INFORMATION
  Report Type: Spontaneous
  Country: US (occurrence: US)
  Receive Date: 20190627
  Receipt Date: 20191216
  Transmission Date: 20200122
  Serious: Yes (Life-Threatening)
  Sender: FDA-Public Use
  Company Number: US-SHIRE-US201920719

PATIENT
  Sex: Female

DRUGS (1)
  1. NATPARA (PARATHYROID HORMONE) [Suspect]
     Active Substance: PARATHYROID HORMONE
     Indication: POST PROCEDURAL HYPOPARATHYROIDISM
     Dosage: 100 MICROGRAM, 1X/DAY:QD
     Route: 058

REACTIONS (7)
  - Headache [Unknown]
  - Recalled product [Unknown]
  - Back pain [Unknown]
  - Injection site bruising [Unknown]
  - Nausea [Unknown]
  - Vomiting [Unknown]
  - Blood calcium increased [Unknown]
